FAERS Safety Report 5695670-4 (Version None)
Quarter: 2008Q2

REPORT INFORMATION
  Report Type: 
  Country: None (occurrence: None)
  Receive Date: 20080407
  Receipt Date: 20080305
  Transmission Date: 20081010
  Serious: No
  Sender: FDA-Public Use
  Company Number: US-BAYER-200816044NA

PATIENT
  Age: 30 Year
  Sex: Female
  Weight: 102 kg

DRUGS (2)
  1. YAZ [Suspect]
     Indication: CONTRACEPTION
     Dates: start: 20071028, end: 20080201
  2. INSULIN [Concomitant]

REACTIONS (2)
  - MENSTRUATION DELAYED [None]
  - PREGNANCY ON ORAL CONTRACEPTIVE [None]
